FAERS Safety Report 4555012-4 (Version None)
Quarter: 2004Q4

REPORT INFORMATION
  Report Type: 
  Country: None (occurrence: None)
  Receive Date: 20041217
  Receipt Date: 20040826
  Transmission Date: 20050328
  Serious: No
  Sender: FDA-Public Use
  Company Number: 2004-BP-07376BP(0)

PATIENT
  Sex: Female

DRUGS (5)
  1. SPIRIVA [Suspect]
     Indication: CHRONIC OBSTRUCTIVE AIRWAYS DISEASE
     Dosage: 18 MCG (18 MCG, QD) IH
     Dates: start: 20040820
  2. NEURONTIN [Concomitant]
  3. FLOVENT [Concomitant]
  4. PREVACID [Concomitant]
  5. ALLEGRA [Concomitant]

REACTIONS (1)
  - HEADACHE [None]
